FAERS Safety Report 6112009-0 (Version None)
Quarter: 2009Q1

REPORT INFORMATION
  Report Type: 
  Country: None (occurrence: None)
  Receive Date: 20090311
  Receipt Date: 20090225
  Transmission Date: 20090719
  Serious: Yes (Hospitalization, Other)
  Sender: FDA-Public Use
  Company Number: IT-AMGEN-UK334554

PATIENT
  Sex: Female

DRUGS (5)
  1. KINERET [Suspect]
     Indication: JUVENILE ARTHRITIS
     Route: 058
  2. FRAXIPARINE [Suspect]
     Route: 065
  3. ANTRA [Suspect]
     Route: 065
  4. URBASON [Concomitant]
     Route: 065
  5. IMMUNE GLOBULIN (HUMAN) [Concomitant]
     Route: 042

REACTIONS (6)
  - BLISTER [None]
  - DERMATITIS EXFOLIATIVE [None]
  - ERYTHEMA [None]
  - HYPERSENSITIVITY [None]
  - PYREXIA [None]
  - RASH MACULO-PAPULAR [None]
